FAERS Safety Report 8508613-2 (Version None)
Quarter: 2012Q3

REPORT INFORMATION
  Report Type: 
  Country: None (occurrence: None)
  Receive Date: 20120703
  Receipt Date: 20120619
  Transmission Date: 20120928
  Serious: Yes (Other)
  Sender: FDA-Public Use
  Company Number: E2B_00000257

PATIENT
  Age: 15 Year
  Sex: Female
  Weight: 72.5755 kg

DRUGS (4)
  1. ZIPRASIDONE HYDROCHLORIDE [Suspect]
     Indication: BIPOLAR DISORDER
     Dosage: 120 MG (60 MG, 2 IN 1 D), PER ORAL
     Route: 048
     Dates: start: 20120426, end: 20120525
  2. PROZAC [Concomitant]
  3. DEPAKOTE [Concomitant]
  4. METHYLPHENIDATE (RITALIN) [Concomitant]

REACTIONS (6)
  - WEIGHT INCREASED [None]
  - DRUG DISPENSING ERROR [None]
  - SOMNOLENCE [None]
  - SUICIDAL IDEATION [None]
  - AGITATION [None]
  - ACCIDENTAL OVERDOSE [None]
